FAERS Safety Report 19760650 (Version 6)
Quarter: 2022Q1

REPORT INFORMATION
  Report Type: Report from Study
  Country: US (occurrence: US)
  Receive Date: 20210830
  Receipt Date: 20220325
  Transmission Date: 20220423
  Serious: No
  Sender: FDA-Public Use
  Company Number: NVSC2021US195623

PATIENT
  Sex: Female

DRUGS (3)
  1. ENTRESTO [Suspect]
     Active Substance: SACUBITRIL\VALSARTAN
     Indication: Product used for unknown indication
     Dosage: 1 DF, BID (24/26 MG)
     Route: 048
     Dates: start: 202107
  2. ENTRESTO [Suspect]
     Active Substance: SACUBITRIL\VALSARTAN
     Dosage: 1 DF, BID (49/51 MG, DOSE INCREASED)
     Route: 048
     Dates: start: 202107
  3. LASIX [Concomitant]
     Active Substance: FUROSEMIDE
     Indication: Product used for unknown indication
     Dosage: UNK UNK, UNKNOWN
     Route: 065

REACTIONS (7)
  - Dyspnoea [Not Recovered/Not Resolved]
  - Renal disorder [Unknown]
  - Blood pressure diastolic decreased [Recovering/Resolving]
  - Drug ineffective [Recovering/Resolving]
  - Weight decreased [Unknown]
  - Dizziness [Unknown]
  - Memory impairment [Unknown]
